FAERS Safety Report 11673079 (Version 1)
Quarter: 2015Q4

REPORT INFORMATION
  Report Type: Spontaneous
  Country: US (occurrence: None)
  Receive Date: 20151027
  Receipt Date: 20151027
  Transmission Date: 20160304
  Serious: Yes (Other)
  Sender: FDA-Public Use
  Company Number: None

PATIENT
  Age: 92 Year
  Sex: Male

DRUGS (1)
  1. MITOMYCIN 40 MG ACCORD HEALTHCARE [Suspect]
     Active Substance: MITOMYCIN
     Indication: BLADDER CANCER
     Route: 042
     Dates: start: 20150828, end: 20151023

REACTIONS (2)
  - Asthenia [None]
  - Fatigue [None]

NARRATIVE: CASE EVENT DATE: 20151023
